FAERS Safety Report 5718467-5 (Version None)
Quarter: 2008Q2

REPORT INFORMATION
  Report Type: 
  Country: None (occurrence: None)
  Receive Date: 20080425
  Receipt Date: 20080415
  Transmission Date: 20081010
  Serious: Yes (Hospitalization, Other)
  Sender: FDA-Public Use
  Company Number: US-PFIZER INC-2008033508

PATIENT
  Sex: Female

DRUGS (4)
  1. ZOLOFT [Suspect]
     Indication: DEPRESSION
  2. ANTIDEPRESSANTS [Interacting]
  3. LITHIUM CARBONATE [Concomitant]
  4. ALL OTHER THERAPEUTIC PRODUCTS [Concomitant]

REACTIONS (14)
  - ADVERSE EVENT [None]
  - AFFECTIVE DISORDER [None]
  - ANGER [None]
  - BIPOLAR DISORDER [None]
  - DRUG INTERACTION [None]
  - HALLUCINATION [None]
  - INTENTIONAL SELF-INJURY [None]
  - MANIA [None]
  - MENTAL DISORDER [None]
  - OVERDOSE [None]
  - SELF INJURIOUS BEHAVIOUR [None]
  - WEIGHT FLUCTUATION [None]
  - WEIGHT INCREASED [None]
  - WOUND [None]
